FAERS Safety Report 12583099 (Version 1)
Quarter: 2016Q3

REPORT INFORMATION
  Report Type: Spontaneous
  Country: US (occurrence: US)
  Receive Date: 20160722
  Receipt Date: 20160722
  Transmission Date: 20161109
  Serious: No
  Sender: FDA-Public Use
  Company Number: US-ELI_LILLY_AND_COMPANY-US201607005601

PATIENT
  Sex: Female

DRUGS (4)
  1. LISINOPRIL. [Concomitant]
     Active Substance: LISINOPRIL
     Indication: RENAL FAILURE
     Dosage: 7.5 MG, UNKNOWN
     Route: 065
  2. ASPIRIN                            /00002701/ [Concomitant]
     Active Substance: ASPIRIN
     Indication: RENAL DISORDER
  3. ASPIRIN                            /00002701/ [Concomitant]
     Active Substance: ASPIRIN
     Indication: CARDIAC DISORDER
     Dosage: 81 MG, UNKNOWN
     Route: 065
  4. HUMALOG [Suspect]
     Active Substance: INSULIN LISPRO
     Indication: TYPE 1 DIABETES MELLITUS
     Dosage: UNK UNK, UNKNOWN
     Route: 065
     Dates: start: 2001

REACTIONS (8)
  - Blood glucose increased [Unknown]
  - Blood glucose decreased [Recovering/Resolving]
  - Glycosylated haemoglobin increased [Unknown]
  - Periarthritis [Unknown]
  - General physical health deterioration [Unknown]
  - Diabetes mellitus inadequate control [Unknown]
  - Retinopathy [Unknown]
  - Multiple allergies [Unknown]

NARRATIVE: CASE EVENT DATE: 2015
